FAERS Safety Report 7898253-0 (Version None)
Quarter: 2011Q4

REPORT INFORMATION
  Report Type: 
  Country: None (occurrence: None)
  Receive Date: 20111103
  Receipt Date: 20111031
  Transmission Date: 20120403
  Serious: Yes (Other)
  Sender: FDA-Public Use
  Company Number: AUR-APL-2011-01572

PATIENT
  Age: 74 Year
  Sex: Female
  Weight: 60 kg

DRUGS (7)
  1. FLUOXETINE HYDROCHLORIDE [Concomitant]
  2. ACETAMINOPHEN [Concomitant]
  3. RISEDRONATE SODIUM [Concomitant]
  4. D-PENICILLAMINE (PENICILLAMINE) [Concomitant]
  5. DIHYDROCODEINE TARTRATE (DIHYDROCODEINE) [Concomitant]
  6. GABAPENTIN [Suspect]
     Indication: RESTLESS LEGS SYNDROME
     Dosage: 100 MG (100 MG,1 IN 1 D),ORAL
     Route: 048
     Dates: start: 20110404, end: 20110409
  7. LANSOPRAZOLE [Concomitant]

REACTIONS (7)
  - JOINT SWELLING [None]
  - HEART RATE IRREGULAR [None]
  - CARDIAC FAILURE CONGESTIVE [None]
  - ATRIAL FIBRILLATION [None]
  - DYSPNOEA [None]
  - CARDIOMEGALY [None]
  - FATIGUE [None]
